FAERS Safety Report 10415999 (Version 1)
Quarter: 2014Q3

REPORT INFORMATION
  Report Type: Report from Study
  Country: US (occurrence: US)
  Receive Date: 20140828
  Receipt Date: 20140828
  Transmission Date: 20150326
  Serious: Yes (Hospitalization)
  Sender: FDA-Public Use
  Company Number: US-SA-2014SA113108

PATIENT
  Age: 82 Year
  Sex: Female

DRUGS (1)
  1. LANTUS [Suspect]
     Active Substance: INSULIN GLARGINE
     Indication: DIABETES MELLITUS
     Dosage: DOSE:46 UNIT(S)
     Route: 065

REACTIONS (10)
  - Cardiac failure [Unknown]
  - Blood cholesterol increased [Unknown]
  - Cerebrovascular accident [Unknown]
  - Cardiac valve disease [Unknown]
  - Fibromyalgia [Unknown]
  - Nephropathy [Unknown]
  - Myocardial infarction [Unknown]
  - Hypoacusis [Unknown]
  - Headache [Unknown]
  - Visual acuity reduced [Unknown]
